FAERS Safety Report 16227875 (Version 2)
Quarter: 2020Q2

REPORT INFORMATION
  Report Type: Report from Study
  Country: NL (occurrence: NL)
  Receive Date: 20190423
  Receipt Date: 20200430
  Transmission Date: 20200713
  Serious: Yes (Other)
  Sender: FDA-Public Use
  Company Number: NL-EMD SERONO-9086759

PATIENT
  Age: 36 Year
  Sex: Female

DRUGS (2)
  1. REBIF [Suspect]
     Active Substance: INTERFERON BETA-1A
     Indication: RELAPSING-REMITTING MULTIPLE SCLEROSIS
     Route: 058
     Dates: end: 202001
  2. REBIF [Suspect]
     Active Substance: INTERFERON BETA-1A
     Dosage: THERAPY START DATE 2020
     Route: 058

REACTIONS (8)
  - Crohn^s disease [Not Recovered/Not Resolved]
  - Disease progression [Not Recovered/Not Resolved]
  - Pharyngitis [Recovering/Resolving]
  - Fatigue [Not Recovered/Not Resolved]
  - Incorrect dose administered [Recovered/Resolved]
  - Liver function test increased [Unknown]
  - Blepharitis [Unknown]
  - Device issue [Unknown]

NARRATIVE: CASE EVENT DATE: 201904
